FAERS Safety Report 11796610 (Version 2)
Quarter: 2015Q4

REPORT INFORMATION
  Report Type: Spontaneous
  Country: FR (occurrence: FR)
  Receive Date: 20151203
  Receipt Date: 20151224
  Transmission Date: 20160305
  Serious: Yes (Hospitalization)
  Sender: FDA-Public Use
  Company Number: FR-SA-2015SA195443

PATIENT
  Age: 69 Year
  Sex: Male

DRUGS (10)
  1. CALCIUM LEVOFOLINATE [Suspect]
     Active Substance: LEVOLEUCOVORIN CALCIUM
     Indication: COLORECTAL CANCER METASTATIC
     Dosage: ONE BY COURSE OF CHEMOTHERAPY
     Route: 041
     Dates: start: 20150930, end: 20150930
  2. CALCIUM LEVOFOLINATE [Suspect]
     Active Substance: LEVOLEUCOVORIN CALCIUM
     Indication: COLORECTAL CANCER METASTATIC
     Dosage: ONE BY COURSE OF CHEMOTHERAPY
     Route: 041
     Dates: start: 20151027, end: 20151027
  3. FLUOROURACILE [Suspect]
     Active Substance: FLUOROURACIL
     Indication: COLORECTAL CANCER METASTATIC
     Dosage: 760 MG OVER 2 HOURS
     Route: 040
     Dates: start: 20150930, end: 20150930
  4. CAMPTO [Suspect]
     Active Substance: IRINOTECAN
     Indication: COLORECTAL CANCER METASTATIC
     Dosage: ONE BY COURSE OF CHEMOTHERAPY
     Route: 041
     Dates: start: 20151027, end: 20151027
  5. FLUOROURACILE [Suspect]
     Active Substance: FLUOROURACIL
     Indication: COLORECTAL CANCER METASTATIC
     Dosage: CONTINUOUS INFUSION OF 4,566 MG OVER 46 HOURS
     Route: 041
     Dates: start: 20150930
  6. FLUOROURACILE [Suspect]
     Active Substance: FLUOROURACIL
     Indication: COLORECTAL CANCER METASTATIC
     Dosage: 760 MG OVER 2 HOURS
     Route: 040
     Dates: start: 20151027, end: 20151027
  7. FLUOROURACILE [Suspect]
     Active Substance: FLUOROURACIL
     Indication: COLORECTAL CANCER METASTATIC
     Dosage: CONTINUOUS INFUSION OF 4,566 MG OVER 46 HOURS
     Route: 041
     Dates: start: 20151027
  8. ZALTRAP [Suspect]
     Active Substance: ZIV-AFLIBERCEPT
     Indication: COLORECTAL CANCER METASTATIC
     Dosage: ONE BY COURSE OF CHEMOTHERAPY
     Route: 041
     Dates: start: 20150930, end: 20150930
  9. ZALTRAP [Suspect]
     Active Substance: ZIV-AFLIBERCEPT
     Indication: COLORECTAL CANCER METASTATIC
     Dosage: ONE BY COURSE OF CHEMOTHERAPY
     Route: 041
     Dates: start: 20151027, end: 20151027
  10. CAMPTO [Suspect]
     Active Substance: IRINOTECAN
     Indication: COLORECTAL CANCER METASTATIC
     Dosage: ONE BY COURSE OF CHEMOTHERAPY
     Route: 041
     Dates: start: 20150930, end: 20150930

REACTIONS (2)
  - Confusional state [Recovered/Resolved]
  - Leukoencephalopathy [Recovered/Resolved]

NARRATIVE: CASE EVENT DATE: 20151106
